FAERS Safety Report 8769351 (Version 1)
Quarter: 2012Q4

REPORT INFORMATION
  Report Type: 
  Country: JP (occurrence: JP)
  Receive Date: 20120903
  Receipt Date: 20120903
  Transmission Date: 20130627
  Serious: Yes (Other)
  Sender: FDA-Public Use
  Company Number: JP-PFIZER INC-2012212631

PATIENT
  Age: 67 Year
  Sex: Female

DRUGS (7)
  1. DEXAMETHASONE SODIUM PHOSPHATE [Suspect]
     Indication: MULTIPLE MYELOMA
     Dosage: 20 mg on days 1-4, 9-12, and 17-20 of the first cycle
     Route: 048
  2. DEXAMETHASONE SODIUM PHOSPHATE [Suspect]
     Dosage: 12 mg, on days 1, 2, 8, 9, 15, and 16 thereafter
  3. DEXAMETHASONE SODIUM PHOSPHATE [Suspect]
     Dosage: UNK
     Route: 048
  4. LENALIDOMIDE [Suspect]
     Indication: MULTIPLE MYELOMA
     Dosage: 5 mg, daily on days 1-21 of a 28-day cycle
     Route: 048
  5. LENALIDOMIDE [Suspect]
     Dosage: 10 mg, daily
     Route: 048
  6. BORTEZOMIB [Concomitant]
     Indication: MULTIPLE MYELOMA
     Dosage: UNK
     Dates: start: 200803
  7. CYCLOPHOSPHAMIDE [Concomitant]
     Dosage: UNK

REACTIONS (5)
  - Bone formation increased [Unknown]
  - Hypocalcaemia [Unknown]
  - Hypomagnesaemia [Unknown]
  - Blood alkaline phosphatase increased [Unknown]
  - Tetany [Unknown]
